FAERS Safety Report 11365241 (Version 1)
Quarter: 2015Q3

REPORT INFORMATION
  Report Type: Spontaneous
  Country: US (occurrence: US)
  Receive Date: 20150811
  Receipt Date: 20150811
  Transmission Date: 20151125
  Serious: Yes (Hospitalization)
  Sender: FDA-Public Use
  Company Number: US-ASTRAZENECA-2015SE76364

PATIENT
  Age: 30971 Day
  Sex: Female
  Weight: 62.6 kg

DRUGS (2)
  1. PRADAXA [Concomitant]
     Active Substance: DABIGATRAN ETEXILATE MESYLATE
  2. TUDORZA PRESSAIR [Suspect]
     Active Substance: ACLIDINIUM BROMIDE
     Indication: CHRONIC OBSTRUCTIVE PULMONARY DISEASE
     Route: 055
     Dates: start: 2013

REACTIONS (4)
  - Hip fracture [Unknown]
  - Gait disturbance [Not Recovered/Not Resolved]
  - Fall [Unknown]
  - Product quality issue [Unknown]

NARRATIVE: CASE EVENT DATE: 20150207
